FAERS Safety Report 8913418 (Version 2)
Quarter: 2013Q1

REPORT INFORMATION
  Report Type: Spontaneous
  Country: GB (occurrence: None)
  Receive Date: 20121113
  Receipt Date: 20121214
  Transmission Date: 20140127
  Serious: Yes (Other)
  Sender: FDA-Public Use
  Company Number: AUR-APL-2012-04781

PATIENT
  Age: 75 Year
  Sex: Female

DRUGS (6)
  1. TERBINAFINE [Suspect]
     Indication: RASH
     Route: 048
     Dates: start: 1995
  2. TERBINAFINE [Suspect]
     Route: 048
     Dates: start: 1995
  3. TERBINAFINE [Suspect]
     Indication: RASH
     Route: 061
  4. ANTIBIOTICS (ANTIBIOTICS) [Suspect]
     Indication: CYSTITIS
  5. ANTIBIOTICS (ANTIBIOTICS) [Suspect]
     Indication: LOWER RESPIRATORY TRACT INFECTION
  6. NYSTATIN (NYSTATIN) [Concomitant]

REACTIONS (17)
  - Rash [None]
  - Candida infection [None]
  - Inflammation [None]
  - Drug ineffective [None]
  - Pruritus [None]
  - Discomfort [None]
  - Tinea infection [None]
  - Fungal infection [None]
  - Suicidal ideation [None]
  - Anxiety [None]
  - Insomnia [None]
  - Lower respiratory tract infection [None]
  - Cystitis [None]
  - Drug hypersensitivity [None]
  - Hyperhidrosis [None]
  - Emotional distress [None]
  - Fear [None]
